FAERS Safety Report 8143202-3 (Version None)
Quarter: 2012Q1

REPORT INFORMATION
  Report Type: 
  Country: None (occurrence: None)
  Receive Date: 20120217
  Receipt Date: 20120215
  Transmission Date: 20120608
  Serious: No
  Sender: FDA-Public Use
  Company Number: US-PFIZER INC-2012041267

PATIENT
  Sex: Male

DRUGS (5)
  1. LORTAB [Concomitant]
     Indication: MUSCULOSKELETAL PAIN
  2. CHANTIX [Suspect]
     Dosage: 1 MG, UNK
  3. CHANTIX [Suspect]
     Indication: SMOKING CESSATION THERAPY
     Dosage: 0.5 MG, DAILY
     Dates: start: 20111201
  4. LORTAB [Concomitant]
     Indication: NECK PAIN
     Dosage: UNK
  5. LORTAB [Concomitant]
     Indication: INTERVERTEBRAL DISC PROTRUSION

REACTIONS (2)
  - FEELING ABNORMAL [None]
  - PANIC ATTACK [None]
